FAERS Safety Report 16270513 (Version 1)
Quarter: 2019Q2

REPORT INFORMATION
  Report Type: Spontaneous
  Country: US (occurrence: US)
  Receive Date: 20190329
  Receipt Date: 20190329
  Transmission Date: 20190711
  Serious: Yes (Death)
  Sender: FDA-Public Use
  Company Number: None

PATIENT
  Age: 77 Year
  Sex: Female

DRUGS (19)
  1. TOBRAMYCIN. [Suspect]
     Active Substance: TOBRAMYCIN
     Indication: BRONCHIECTASIS
     Dosage: ?          OTHER DOSE:1 VIAL;OTHER FREQUENCY:DAILY/29ON/29OFF;OTHER ROUTE:NEBULIZER?
     Dates: start: 20171013
  2. XOLAIR [Concomitant]
     Active Substance: OMALIZUMAB
  3. DILTIAZEM. [Concomitant]
     Active Substance: DILTIAZEM
  4. TYLENOL [Concomitant]
     Active Substance: ACETAMINOPHEN
  5. RINITIDINE [Concomitant]
  6. PROAIR HFA [Concomitant]
     Active Substance: ALBUTEROL SULFATE
  7. PRAVASTATIN. [Concomitant]
     Active Substance: PRAVASTATIN
  8. METOPROLOL TARTRATE. [Concomitant]
     Active Substance: METOPROLOL TARTRATE
  9. ALBUTEROL. [Concomitant]
     Active Substance: ALBUTEROL
  10. PREDNISONE. [Concomitant]
     Active Substance: PREDNISONE
  11. RECLAST [Concomitant]
     Active Substance: ZOLEDRONIC ACID
  12. VITAMIN D3 [Concomitant]
     Active Substance: CHOLECALCIFEROL
  13. LEVOFLOXACIN. [Concomitant]
     Active Substance: LEVOFLOXACIN
  14. BREO ELLIPTA [Concomitant]
     Active Substance: FLUTICASONE FUROATE\VILANTEROL TRIFENATATE
  15. TUMS [Concomitant]
     Active Substance: CALCIUM CARBONATE
  16. HYDROCO/APAP [Concomitant]
     Active Substance: ACETAMINOPHEN\HYDROCODONE
  17. TOMOXIFEN [Concomitant]
  18. VFENLAFAXINE [Concomitant]
  19. OMEPRAZOLE. [Concomitant]
     Active Substance: OMEPRAZOLE

REACTIONS (1)
  - Death [None]
